FAERS Safety Report 7384740-0 (Version None)
Quarter: 2011Q1

REPORT INFORMATION
  Report Type: 
  Country: None (occurrence: None)
  Receive Date: 20110330
  Receipt Date: 20110318
  Transmission Date: 20110831
  Serious: Yes (Other)
  Sender: FDA-Public Use
  Company Number: PHHY2011BR22876

PATIENT
  Sex: Female

DRUGS (8)
  1. DIOVAN [Suspect]
     Indication: HYPERTENSION
     Dosage: 80 MG, QD
     Route: 048
  2. DIOVAN [Suspect]
     Dosage: 320 MG, QD
     Route: 048
  3. SIMVACOR [Concomitant]
     Dosage: 40 MG, BID
     Route: 048
  4. ASPIRIN [Concomitant]
     Dosage: ONE TABLET, DAILY
     Route: 048
  5. DIUREX A [Concomitant]
     Dosage: 50 MG, QD
     Route: 048
  6. METFORMIN [Concomitant]
     Dosage: 850 MG, BID
     Route: 048
  7. ALLOPURINOL [Concomitant]
     Dosage: 50 MG, QD
     Route: 048
  8. OMEPRAZOLE [Concomitant]
     Dosage: 40 MG, BID
     Route: 048

REACTIONS (4)
  - BREAST CANCER [None]
  - ARTHROPATHY [None]
  - ARTHRALGIA [None]
  - GAIT DISTURBANCE [None]
